FAERS Safety Report 12776860 (Version 1)
Quarter: 2016Q3

REPORT INFORMATION
  Report Type: Report from Study
  Country: US (occurrence: US)
  Receive Date: 20160923
  Receipt Date: 20160923
  Transmission Date: 20161109
  Serious: Yes (Other)
  Sender: FDA-Public Use
  Company Number: US-GILEAD-2015-0135977

PATIENT
  Age: 62 Year
  Sex: Male

DRUGS (4)
  1. SOFOSBUVIR [Suspect]
     Active Substance: SOFOSBUVIR
     Indication: CHRONIC HEPATITIS C
     Dosage: 400 MG, UNK
     Route: 048
     Dates: start: 20140702, end: 20140923
  2. PEGASYS [Suspect]
     Active Substance: PEGINTERFERON ALFA-2A
     Indication: CHRONIC HEPATITIS C
     Dosage: UNK
     Route: 065
     Dates: start: 20140702, end: 20140923
  3. SOFOSBUVIR [Suspect]
     Active Substance: SOFOSBUVIR
     Dosage: 400 UNK, UNK
     Route: 048
     Dates: start: 2015, end: 2015
  4. RIBAVIRIN. [Suspect]
     Active Substance: RIBAVIRIN
     Indication: CHRONIC HEPATITIS C
     Dosage: UNK
     Route: 048
     Dates: start: 20140702, end: 20140923

REACTIONS (7)
  - Crohn^s disease [Unknown]
  - Restlessness [Unknown]
  - Affective disorder [Unknown]
  - Anxiety [Unknown]
  - Drug ineffective [Unknown]
  - Irritability [Unknown]
  - Hepatitis C [Unknown]

NARRATIVE: CASE EVENT DATE: 201412
